FAERS Safety Report 5725502-7 (Version None)
Quarter: 2008Q2

REPORT INFORMATION
  Report Type: 
  Country: None (occurrence: None)
  Receive Date: 20080501
  Receipt Date: 20080424
  Transmission Date: 20081010
  Serious: Yes (Other)
  Sender: FDA-Public Use
  Company Number: DE-JNJFOC-20080302369

PATIENT
  Age: 10 Decade
  Sex: Male

DRUGS (5)
  1. RISPERDAL [Suspect]
     Indication: COGNITIVE DISORDER
     Route: 048
  2. LISINOPRIL [Concomitant]
  3. ALLOPURINOL [Concomitant]
     Dosage: 1X1/2
  4. DIGITOXIN TAB [Concomitant]
  5. TORSEMIDE [Concomitant]

REACTIONS (1)
  - BLOOD CREATININE INCREASED [None]
